FAERS Safety Report 7244247-8 (Version None)
Quarter: 2011Q1

REPORT INFORMATION
  Report Type: 
  Country: None (occurrence: None)
  Receive Date: 20110118
  Receipt Date: 20101217
  Transmission Date: 20110831
  Serious: Yes (Death, Hospitalization)
  Sender: FDA-Public Use
  Company Number: 2010120025

PATIENT
  Age: 68 Year
  Sex: Male

DRUGS (8)
  1. ALLOPURINOL [Suspect]
     Indication: HYPERURICAEMIA
     Dosage: ORAL
     Route: 048
  2. HALFDIGOXIN KY (DIGOXIN) [Concomitant]
  3. MUCOSTA (REBAMIPIDE) [Concomitant]
  4. LASIX [Suspect]
     Dosage: ORAL
     Route: 048
  5. ARTIST (CARVEDILOL) [Suspect]
     Indication: CARDIAC FAILURE
     Dosage: ORAL
     Route: 048
  6. LUPRAC (TORASEMIDE) [Suspect]
     Indication: CARDIAC FAILURE
     Dosage: ORAL
     Route: 048
  7. WARFARIN POTASSIUM (WARFARIN POTASSIUM) [Concomitant]
  8. DIOVAN [Concomitant]

REACTIONS (21)
  - DERMATITIS EXFOLIATIVE [None]
  - ALANINE AMINOTRANSFERASE INCREASED [None]
  - DRUG ERUPTION [None]
  - PULMONARY CONGESTION [None]
  - HAEMORRHAGE [None]
  - ERYTHEMA [None]
  - STRONGYLOIDIASIS [None]
  - GENERALISED OEDEMA [None]
  - CARDIAC FAILURE [None]
  - LYMPHOCYTE PERCENTAGE DECREASED [None]
  - BLOOD BILIRUBIN INCREASED [None]
  - BLOOD ALKALINE PHOSPHATASE INCREASED [None]
  - PNEUMONITIS [None]
  - PYREXIA [None]
  - NEUTROPHIL PERCENTAGE DECREASED [None]
  - DRUG RASH WITH EOSINOPHILIA AND SYSTEMIC SYMPTOMS [None]
  - BLOOD LACTATE DEHYDROGENASE INCREASED [None]
  - RASH PUSTULAR [None]
  - EOSINOPHIL PERCENTAGE INCREASED [None]
  - RED BLOOD CELL COUNT DECREASED [None]
  - CARDIOMEGALY [None]
